FAERS Safety Report 6411541-X (Version None)
Quarter: 2009Q4

REPORT INFORMATION
  Report Type: 
  Country: None (occurrence: None)
  Receive Date: 20091023
  Receipt Date: 20091015
  Transmission Date: 20100525
  Serious: Yes (Hospitalization)
  Sender: FDA-Public Use
  Company Number: GB-ABBOTT-06P-167-0351993-00

PATIENT
  Age: 15 Year
  Sex: Male

DRUGS (7)
  1. EPILIM CHRONO TABLETS [Suspect]
     Indication: MOOD SWINGS
     Route: 048
     Dates: start: 20060904, end: 20061010
  2. QUETIAPINE [Suspect]
     Indication: HYPOMANIA
     Route: 048
     Dates: start: 20060727
  3. QUETIAPINE [Suspect]
     Indication: BIPOLAR I DISORDER
  4. QUETIAPINE [Suspect]
     Indication: AGGRESSION
  5. FLUOXETINE [Concomitant]
     Indication: DEPRESSION
     Route: 048
     Dates: start: 20060824, end: 20061014
  6. FLUOXETINE [Concomitant]
     Indication: MOOD SWINGS
  7. FLUOXETINE [Concomitant]
     Indication: BIPOLAR DISORDER

REACTIONS (4)
  - DEEP VEIN THROMBOSIS [None]
  - PROTEIN TOTAL DECREASED [None]
  - PULMONARY EMBOLISM [None]
  - PULMONARY OEDEMA [None]
